FAERS Safety Report 24413141 (Version 2)
Quarter: 2024Q4

REPORT INFORMATION
  Report Type: Spontaneous
  Country: US (occurrence: US)
  Receive Date: 20241008
  Receipt Date: 20241203
  Transmission Date: 20250114
  Serious: No
  Sender: NOVARTIS
  Company Number: US-002147023-NVSC2024US196525

PATIENT
  Sex: Female

DRUGS (1)
  1. MEKINIST [Suspect]
     Active Substance: TRAMETINIB DIMETHYL SULFOXIDE
     Indication: Product used for unknown indication
     Dosage: 5 MG, QD
     Route: 065

REACTIONS (8)
  - Joint swelling [Unknown]
  - Palpitations [Unknown]
  - Rash [Unknown]
  - Myalgia [Unknown]
  - Bone pain [Unknown]
  - Diarrhoea [Unknown]
  - Treatment failure [Unknown]
  - Product storage error [Unknown]
